FAERS Safety Report 9493847 (Version 2)
Quarter: 2013Q4

REPORT INFORMATION
  Report Type: Report from Study
  Country: DE (occurrence: DE)
  Receive Date: 20130902
  Receipt Date: 20131003
  Transmission Date: 20140711
  Serious: Yes (Hospitalization)
  Sender: FDA-Public Use
  Company Number: DE-ROCHE-1269224

PATIENT
  Age: 63 Year
  Sex: Female
  Weight: 72 kg

DRUGS (6)
  1. BEVACIZUMAB [Suspect]
     Indication: OVARIAN CANCER
     Dosage: MOST RECENT DOSE ON 09/AUG/2013
     Route: 042
     Dates: start: 20130110
  2. CARBOPLATIN [Suspect]
     Indication: OVARIAN CANCER
     Dosage: MOST RECENT DOSE ON 14/MAR/2013
     Route: 042
     Dates: start: 20121130
  3. PACLITAXEL [Suspect]
     Indication: OVARIAN CANCER
     Dosage: MOST RECENT DOSE ON 14/MAR/2013
     Route: 042
     Dates: start: 20121130
  4. L-THYROXIN [Concomitant]
     Indication: HYPERTHYROIDISM
     Route: 048
     Dates: start: 20130830
  5. METOHEXAL (GERMANY) [Concomitant]
     Indication: HYPERTENSION
     Route: 048
     Dates: start: 20130830
  6. PRETERAX [Concomitant]
     Indication: HYPERTENSION
     Route: 048
     Dates: start: 20130830

REACTIONS (1)
  - General physical health deterioration [Recovered/Resolved]
